FAERS Safety Report 10255384 (Version 1)
Quarter: 2014Q2

REPORT INFORMATION
  Report Type: Spontaneous
  Country: US (occurrence: US)
  Receive Date: 20140624
  Receipt Date: 20140624
  Transmission Date: 20141212
  Serious: No
  Sender: FDA-Public Use
  Company Number: US-PFIZER INC-2014169514

PATIENT
  Age: 54 Year
  Sex: Female
  Weight: 59 kg

DRUGS (6)
  1. PREMPHASE [Suspect]
     Dosage: UNK
     Route: 048
     Dates: end: 2014
  2. PREMARIN [Suspect]
     Dosage: 0.625 MG, UNK
     Route: 048
     Dates: start: 2014, end: 2014
  3. PROPRANOLOL [Concomitant]
     Indication: HYPERTENSION
     Dosage: UNK
  4. CYMBALTA [Concomitant]
     Indication: DEPRESSION
     Dosage: UNK
  5. TEGRETOL [Concomitant]
     Indication: CONVULSION
     Dosage: UNK
  6. SODIUM [Concomitant]
     Indication: BLOOD SODIUM DECREASED
     Dosage: UNK

REACTIONS (6)
  - Blood oestrogen decreased [Unknown]
  - Crying [Unknown]
  - Activities of daily living impaired [Unknown]
  - Headache [Unknown]
  - Metrorrhagia [Unknown]
  - Nausea [Unknown]
